FAERS Safety Report 4982183-8 (Version None)
Quarter: 2006Q2

REPORT INFORMATION
  Report Type: 
  Country: None (occurrence: None)
  Receive Date: 20060421
  Receipt Date: 20060418
  Transmission Date: 20061013
  Serious: Yes (Hospitalization, Disabling, Other)
  Sender: FDA-Public Use
  Company Number: 200602973

PATIENT
  Age: 32 Year
  Sex: Male

DRUGS (1)
  1. BOTOX [Suspect]
     Indication: MUSCLE SPASTICITY
     Dosage: 300 UNITS ONCE IM
     Route: 030
     Dates: start: 20060214

REACTIONS (4)
  - CLONUS [None]
  - HYPERTONIA [None]
  - MYELITIS TRANSVERSE [None]
  - SPINAL CORD DISORDER [None]
